FAERS Safety Report 5737191-6 (Version None)
Quarter: 2008Q2

REPORT INFORMATION
  Report Type: 
  Country: None (occurrence: None)
  Receive Date: 20080514
  Receipt Date: 20080507
  Transmission Date: 20081010
  Serious: Yes (Other)
  Sender: FDA-Public Use
  Company Number: US-JNJFOC-20080501828

PATIENT
  Sex: Male
  Weight: 68.04 kg

DRUGS (5)
  1. LEVAQUIN [Suspect]
     Indication: LUNG INFECTION
     Route: 048
  2. METHADONE HCL [Concomitant]
     Indication: PAIN
     Route: 048
  3. TRAZODONE HCL [Concomitant]
     Indication: SLEEP DISORDER THERAPY
     Route: 048
  4. QVAR 40 [Concomitant]
     Indication: ASTHMA
     Route: 055
  5. GABAPENTIN [Concomitant]
     Indication: NEURALGIA
     Route: 048

REACTIONS (1)
  - THROMBOSIS [None]
